FAERS Safety Report 5571362-7 (Version None)
Quarter: 2007Q4

REPORT INFORMATION
  Report Type: 
  Country: None (occurrence: None)
  Receive Date: 20071221
  Receipt Date: 20070820
  Transmission Date: 20080405
  Serious: No
  Sender: FDA-Public Use
  Company Number: A0673064A

PATIENT
  Age: 83 Year
  Sex: Female

DRUGS (5)
  1. FLONASE [Suspect]
     Route: 045
  2. THYROID TAB [Concomitant]
  3. UNKNOWN MEDICATION [Concomitant]
  4. BLOOD PRESSURE MEDICATION [Concomitant]
  5. ASCORBIC ACID [Concomitant]

REACTIONS (1)
  - VISION BLURRED [None]
